FAERS Safety Report 10014637 (Version 4)
Quarter: 2014Q3

REPORT INFORMATION
  Report Type: Report from Study
  Country: JP (occurrence: JP)
  Receive Date: 20140317
  Receipt Date: 20140916
  Transmission Date: 20150326
  Serious: Yes (Other)
  Sender: FDA-Public Use
  Company Number: JP-BRISTOL-MYERS SQUIBB COMPANY-20492393

PATIENT
  Age: 71 Year
  Sex: Female
  Weight: 50.5 kg

DRUGS (13)
  1. SILECE [Suspect]
     Active Substance: FLUNITRAZEPAM
     Indication: BIPOLAR DISORDER
     Dosage: TABS?2MG:01-OCT-13 ONGOING
     Route: 048
     Dates: start: 20130904
  2. LACTOBACILLUS ACIDOPHILUS [Concomitant]
     Active Substance: LACTOBACILLUS ACIDOPHILUS
     Dosage: ONGOING
     Dates: start: 20130710
  3. ABILIFY DISCMELT [Suspect]
     Active Substance: ARIPIPRAZOLE
     Indication: BIPOLAR DISORDER
     Dosage: 21MG 24SEP13 TO 30SEP13?16MG 01OCT13 TO 15OCT13?12MG 16OCT13 TO 29OCT13?6MG 30OCT13 TO ONGOING
     Route: 048
     Dates: start: 20130906
  4. FAMOTIDINE. [Concomitant]
     Active Substance: FAMOTIDINE
     Dosage: TABS ONGOING
     Dates: start: 20130424
  5. FERROMIA [Concomitant]
     Active Substance: FERROUS CITRATE
     Dosage: ONGOING
     Dates: start: 20130619
  6. MAGMITT [Concomitant]
     Active Substance: MAGNESIUM OXIDE
     Dosage: ONGOING
     Dates: start: 20130710
  7. NORVASC [Concomitant]
     Active Substance: AMLODIPINE BESYLATE
     Dosage: TABS ONGOING
     Dates: start: 20130821
  8. BROTIZOLAM [Suspect]
     Active Substance: BROTIZOLAM
     Indication: BIPOLAR DISORDER
     Dosage: TABS
     Route: 048
     Dates: start: 20130723
  9. LIMAS [Suspect]
     Active Substance: LITHIUM CARBONATE
     Indication: BIPOLAR DISORDER
     Dosage: 4SEP13 TO 27OCT13 600MG?28OCT13 TO ONGOING 400MG?TABS
     Route: 048
     Dates: start: 20130904
  10. DIOVAN [Concomitant]
     Active Substance: VALSARTAN
     Dosage: TABS ONGOING
     Dates: start: 20130820
  11. CLOSTRIDIUM BUTYRICUM [Concomitant]
     Active Substance: CLOSTRIDIUM BUTYRICUM SPORES STRAIN M-55
     Dosage: ONGOING
     Dates: start: 20130710
  12. REBAMIPIDE [Concomitant]
     Active Substance: REBAMIPIDE
     Dosage: ONGOING
     Dates: start: 20130619
  13. SACCHAROMYCES BOULARDII [Concomitant]
     Active Substance: SACCHAROMYCES CEREVISIAE
     Dosage: ONGOING
     Dates: start: 20130710

REACTIONS (2)
  - Parkinsonism [Recovering/Resolving]
  - Pneumonia [Recovered/Resolved]

NARRATIVE: CASE EVENT DATE: 20130924
